FAERS Safety Report 5629468-X (Version None)
Quarter: 2008Q1

REPORT INFORMATION
  Report Type: 
  Country: None (occurrence: None)
  Receive Date: 20080215
  Receipt Date: 20080215
  Transmission Date: 20080703
  Serious: Yes (Other)
  Sender: FDA-Public Use
  Company Number: None

PATIENT
  Age: 71 Year
  Sex: Female
  Weight: 63.05 kg

DRUGS (1)
  1. FORTEO [Suspect]
     Indication: OSTEOPOROSIS
     Dosage: QD SQ
     Route: 058
     Dates: start: 20071201, end: 20080101

REACTIONS (3)
  - CHEST PAIN [None]
  - DYSPNOEA [None]
  - PAIN [None]
